FAERS Safety Report 7901483-2 (Version None)
Quarter: 2011Q4

REPORT INFORMATION
  Report Type: 
  Country: None (occurrence: None)
  Receive Date: 20111104
  Receipt Date: 20111024
  Transmission Date: 20120403
  Serious: Yes (Other)
  Sender: FDA-Public Use
  Company Number: TCI2011A05684

PATIENT
  Age: 67 Year
  Sex: Male

DRUGS (5)
  1. GLIMEPIRIDE TANABE (GLIMEPIRIDE) [Concomitant]
  2. MICARDIS [Suspect]
     Dosage: PER ORAL
     Route: 048
     Dates: start: 20050701
  3. ACTOS [Suspect]
     Indication: DIABETES MELLITUS
     Dosage: 15 MG (15 MG, 1 - 2) PER ORAL
     Route: 048
     Dates: start: 20070601
  4. TOWAMIN (ATENOLOL) [Concomitant]
  5. ASPIRIN [Concomitant]

REACTIONS (1)
  - INTERSTITIAL LUNG DISEASE [None]
